FAERS Safety Report 18444854 (Version 1)
Quarter: 2020Q4

REPORT INFORMATION
  Report Type: Report from Study
  Country: US (occurrence: US)
  Receive Date: 20201030
  Receipt Date: 20201030
  Transmission Date: 20210114
  Serious: Yes (Hospitalization)
  Sender: FDA-Public Use
  Company Number: US-EISAI MEDICAL RESEARCH-EC-2018-035802

PATIENT
  Age: 74 Year
  Sex: Female

DRUGS (5)
  1. LENVIMA [Suspect]
     Active Substance: LENVATINIB
     Dosage: MISSED DOSES
     Route: 048
     Dates: start: 2019, end: 201912
  2. LENVIMA [Suspect]
     Active Substance: LENVATINIB
     Route: 048
     Dates: start: 20180410, end: 2019
  3. LEVAQUIN [Suspect]
     Active Substance: LEVOFLOXACIN
     Indication: URINARY TRACT INFECTION
     Dosage: DOSE AND FREQUENCY UNKNOWN
     Route: 065
     Dates: start: 2018, end: 2018
  4. LENVIMA [Suspect]
     Active Substance: LENVATINIB
     Indication: THYROID CANCER
     Route: 048
     Dates: start: 20180123, end: 201803
  5. LENVIMA [Suspect]
     Active Substance: LENVATINIB
     Dosage: MISSED 2 OR 3 DOSES BECAUSE OF DIARRHEA.
     Route: 048
     Dates: end: 20200320

REACTIONS (56)
  - Blood calcium decreased [Not Recovered/Not Resolved]
  - Wound [Recovering/Resolving]
  - Kidney infection [Recovered/Resolved]
  - Gastrointestinal oedema [Not Recovered/Not Resolved]
  - Oral pain [Unknown]
  - Walking aid user [Recovering/Resolving]
  - Gastrooesophageal reflux disease [Recovered/Resolved]
  - Platelet count decreased [Recovered/Resolved]
  - Pruritus [Recovered/Resolved]
  - Blood pressure increased [Recovering/Resolving]
  - Anal incontinence [Not Recovered/Not Resolved]
  - Sciatica [Not Recovered/Not Resolved]
  - Mental impairment [Unknown]
  - Feeding disorder [Unknown]
  - Muscle spasms [Not Recovered/Not Resolved]
  - Pollakiuria [Recovering/Resolving]
  - Depression [Not Recovered/Not Resolved]
  - Renal pain [Not Recovered/Not Resolved]
  - Decreased appetite [Not Recovered/Not Resolved]
  - Oral infection [Unknown]
  - Diverticulitis [Not Recovered/Not Resolved]
  - Pain in extremity [Recovered/Resolved]
  - Back pain [Not Recovered/Not Resolved]
  - Dehydration [Not Recovered/Not Resolved]
  - Sinusitis [Not Recovered/Not Resolved]
  - Vomiting [Not Recovered/Not Resolved]
  - Lip dry [Not Recovered/Not Resolved]
  - Loss of consciousness [Not Recovered/Not Resolved]
  - Mouth haemorrhage [Unknown]
  - Nasal discomfort [Unknown]
  - Diarrhoea [Not Recovered/Not Resolved]
  - Oral fungal infection [Not Recovered/Not Resolved]
  - Abdominal pain upper [Recovered/Resolved]
  - Tumour marker increased [Recovering/Resolving]
  - Gingival ulceration [Recovered/Resolved]
  - Gait disturbance [Not Recovered/Not Resolved]
  - Urinary tract infection [Unknown]
  - Illness [Not Recovered/Not Resolved]
  - Chills [Not Recovered/Not Resolved]
  - Dizziness [Not Recovered/Not Resolved]
  - Oesophageal candidiasis [Unknown]
  - Fatigue [Not Recovered/Not Resolved]
  - Malignant neoplasm progression [Not Recovered/Not Resolved]
  - Weight decreased [Not Recovered/Not Resolved]
  - Haemorrhoidal haemorrhage [Not Recovered/Not Resolved]
  - Nail discolouration [Not Recovered/Not Resolved]
  - Feeling abnormal [Unknown]
  - Stomatitis [Recovered/Resolved]
  - Pulmonary congestion [Not Recovered/Not Resolved]
  - Abdominal discomfort [Unknown]
  - Peripheral swelling [Not Recovered/Not Resolved]
  - Dyspnoea [Unknown]
  - Insomnia [Unknown]
  - Nausea [Not Recovered/Not Resolved]
  - Gingival bleeding [Unknown]
  - Rash [Recovered/Resolved]

NARRATIVE: CASE EVENT DATE: 2018
